FAERS Safety Report 6175709-2 (Version None)
Quarter: 2009Q2

REPORT INFORMATION
  Report Type: 
  Country: None (occurrence: None)
  Receive Date: 20090501
  Receipt Date: 20090421
  Transmission Date: 20091009
  Serious: Yes (Other)
  Sender: FDA-Public Use
  Company Number: GB-NOVOPROD-286506

PATIENT
  Age: 69 Year
  Sex: Female

DRUGS (1)
  1. KLIOVANCE [Suspect]
     Indication: BONE DENSITY DECREASED
     Dates: end: 20090324

REACTIONS (1)
  - MYOCARDIAL INFARCTION [None]
